FAERS Safety Report 24157455 (Version 1)
Quarter: 2024Q3

REPORT INFORMATION
  Report Type: Report from Study
  Country: DE (occurrence: DE)
  Receive Date: 20240731
  Receipt Date: 20240731
  Transmission Date: 20241016
  Serious: Yes (Other)
  Sender: ROCHE
  Company Number: DE-ROCHE-3544448

PATIENT
  Age: 39 Year
  Sex: Female

DRUGS (9)
  1. OCREVUS [Suspect]
     Active Substance: OCRELIZUMAB
     Indication: Multiple sclerosis relapse
     Route: 042
     Dates: start: 20210115, end: 20210129
  2. OCREVUS [Suspect]
     Active Substance: OCRELIZUMAB
     Route: 042
     Dates: start: 20231016
  3. CIPRALEX [Concomitant]
     Active Substance: ESCITALOPRAM OXALATE
     Route: 048
     Dates: start: 20230619, end: 20230802
  4. comirnaty [Concomitant]
  5. DIENOGEST\ETHINYL ESTRADIOL [Concomitant]
     Active Substance: DIENOGEST\ETHINYL ESTRADIOL
  6. LITHIUM [Concomitant]
     Active Substance: LITHIUM
  7. MIRTAZAPINE [Concomitant]
     Active Substance: MIRTAZAPINE
  8. RIZATRIPTAN [Concomitant]
     Active Substance: RIZATRIPTAN
  9. CIPRALEX [Concomitant]
     Active Substance: ESCITALOPRAM OXALATE

REACTIONS (2)
  - Hypertension [Unknown]
  - Hypertension [Not Recovered/Not Resolved]

NARRATIVE: CASE EVENT DATE: 20230803
